FAERS Safety Report 25237660 (Version 1)
Quarter: 2025Q2

REPORT INFORMATION
  Report Type: Spontaneous
  Country: US (occurrence: US)
  Receive Date: 20250425
  Receipt Date: 20250425
  Transmission Date: 20250716
  Serious: Yes (Hospitalization, Other)
  Sender: UROGEN PHARMA
  Company Number: US-UROGEN PHARMA LTD.-2025-UGN-000048

PATIENT

DRUGS (7)
  1. JELMYTO [Suspect]
     Active Substance: MITOMYCIN
     Indication: Transitional cell cancer of the renal pelvis and ureter
     Dosage: UNK (INSTILLATION), ONCE A WEEK
     Dates: start: 20240514, end: 20240514
  2. JELMYTO [Suspect]
     Active Substance: MITOMYCIN
     Dosage: UNK (INSTILLATION), ONCE A WEEK
     Dates: start: 20240521, end: 20240521
  3. JELMYTO [Suspect]
     Active Substance: MITOMYCIN
     Dosage: UNK (INSTILLATION), ONCE A WEEK
     Dates: start: 20240528, end: 20240528
  4. JELMYTO [Suspect]
     Active Substance: MITOMYCIN
     Dosage: UNK (INSTILLATION), ONCE A WEEK
     Dates: start: 20240604, end: 20240604
  5. JELMYTO [Suspect]
     Active Substance: MITOMYCIN
     Dosage: UNK (INSTILLATION), ONCE A WEEK
     Dates: start: 20240613, end: 20240613
  6. JELMYTO [Suspect]
     Active Substance: MITOMYCIN
     Dosage: UNK (INSTILLATION), ONCE A WEEK
     Dates: start: 20240620, end: 20240620
  7. JELMYTO [Suspect]
     Active Substance: MITOMYCIN
     Dates: start: 20250313, end: 20250313

REACTIONS (4)
  - Neutropenia [Unknown]
  - Pyrexia [Unknown]
  - Nausea [Unknown]
  - Vomiting [Unknown]

NARRATIVE: CASE EVENT DATE: 20250301
